FAERS Safety Report 4417806-5 (Version None)
Quarter: 2004Q3

REPORT INFORMATION
  Report Type: 
  Country: None (occurrence: None)
  Receive Date: 20040803
  Receipt Date: 20040723
  Transmission Date: 20050211
  Serious: Yes (Hospitalization)
  Sender: FDA-Public Use
  Company Number: 2004225158JP

PATIENT
  Sex: Female

DRUGS (2)
  1. DOSTINEX [Suspect]
     Dosage: ORAL
     Route: 048
     Dates: start: 20040716
  2. CLOMID [Concomitant]

REACTIONS (1)
  - EXANTHEM [None]
